FAERS Safety Report 7518072-4 (Version None)
Quarter: 2011Q2

REPORT INFORMATION
  Report Type: 
  Country: None (occurrence: None)
  Receive Date: 20110602
  Receipt Date: 20110519
  Transmission Date: 20111010
  Serious: Yes (Other)
  Sender: FDA-Public Use
  Company Number: US-JNJFOC-20110511672

PATIENT

DRUGS (2)
  1. RISPERDAL CONSTA [Suspect]
     Indication: PRODUCT USED FOR UNKNOWN INDICATION
     Route: 030
  2. RISPERDAL CONSTA [Suspect]
     Route: 030

REACTIONS (16)
  - TARDIVE DYSKINESIA [None]
  - BREAST MASS [None]
  - FOREIGN BODY ASPIRATION [None]
  - DROOLING [None]
  - TACHYCARDIA [None]
  - PAIN [None]
  - SUICIDAL IDEATION [None]
  - ANGER [None]
  - INSOMNIA [None]
  - DYSPHAGIA [None]
  - PERIPHERAL COLDNESS [None]
  - CONFUSIONAL STATE [None]
  - VISUAL ACUITY REDUCED [None]
  - DRY MOUTH [None]
  - DEHYDRATION [None]
  - EYE IRRITATION [None]
